FAERS Safety Report 4861072-3 (Version None)
Quarter: 2005Q4

REPORT INFORMATION
  Report Type: 
  Country: None (occurrence: None)
  Receive Date: 20051220
  Receipt Date: 20051215
  Transmission Date: 20060501
  Serious: Yes (Other)
  Sender: FDA-Public Use
  Company Number: US-GLAXOSMITHKLINE-A0585968A

PATIENT
  Age: 32 Year
  Sex: Female

DRUGS (6)
  1. COREG [Suspect]
     Indication: HYPERTENSION
     Route: 048
     Dates: start: 20051001
  2. PREDNISONE TAB [Concomitant]
  3. RENAGEL [Concomitant]
  4. LORATADINE [Concomitant]
  5. EPOGEN [Concomitant]
  6. NEPHROCAPS [Concomitant]

REACTIONS (2)
  - EYE HAEMORRHAGE [None]
  - EYE PAIN [None]
